APPROVED DRUG PRODUCT: EPHEDRINE SULFATE
Active Ingredient: EPHEDRINE SULFATE
Strength: 50MG/ML (50MG/ML)
Dosage Form/Route: SOLUTION;INTRAVENOUS
Application: A217276 | Product #001
Applicant: ZYDUS PHARMACEUTICALS USA INC
Approved: May 16, 2023 | RLD: No | RS: No | Type: DISCN